FAERS Safety Report 9039692 (Version 1)
Quarter: 2013Q1

REPORT INFORMATION
  Report Type: Report from Study
  Country: US (occurrence: US)
  Receive Date: 20130130
  Receipt Date: 20130130
  Transmission Date: 20140127
  Serious: No
  Sender: FDA-Public Use
  Company Number: US-ABBOTT-12P-163-0947393-00

PATIENT
  Sex: Male
  Weight: 81.72 kg

DRUGS (5)
  1. HUMIRA 40 MG/0.8 ML PEN [Suspect]
     Indication: REITER^S SYNDROME
     Route: 058
     Dates: start: 201205, end: 201206
  2. HUMIRA 40 MG/0.8 ML PEN [Suspect]
     Indication: ARTHRITIS REACTIVE
  3. PREDNISONE [Concomitant]
     Indication: REITER^S SYNDROME
  4. HYDROCODONE [Concomitant]
     Indication: PAIN
  5. METHOTREXATE [Concomitant]
     Indication: REITER^S SYNDROME

REACTIONS (3)
  - Inappropriate schedule of drug administration [Not Recovered/Not Resolved]
  - Drug ineffective [Not Recovered/Not Resolved]
  - Off label use [Not Recovered/Not Resolved]
